FAERS Safety Report 7647168-1 (Version None)
Quarter: 2011Q3

REPORT INFORMATION
  Report Type: 
  Country: None (occurrence: None)
  Receive Date: 20110729
  Receipt Date: 20110729
  Transmission Date: 20111222
  Serious: Yes (Other)
  Sender: FDA-Public Use
  Company Number: None

PATIENT
  Age: 23 Year
  Sex: Female
  Weight: 43.2 kg

DRUGS (5)
  1. MYCOPHENOLATE MOFETIL [Concomitant]
  2. ONDANSETRON [Concomitant]
  3. FLUCONAZOLE [Concomitant]
  4. CYCLOSPORINE [Suspect]
     Indication: PROPHYLAXIS AGAINST GRAFT VERSUS HOST DISEASE
     Dosage: 125MG BID BY MOUTH
     Route: 048
     Dates: start: 20110407
  5. ACYCLOVIR [Concomitant]

REACTIONS (3)
  - BLOOD CREATININE INCREASED [None]
  - IMMUNOSUPPRESSANT DRUG LEVEL INCREASED [None]
  - BLOOD TRIGLYCERIDES INCREASED [None]
